FAERS Safety Report 8531426-2 (Version None)
Quarter: 2012Q3

REPORT INFORMATION
  Report Type: 
  Country: None (occurrence: None)
  Receive Date: 20120723
  Receipt Date: 20120712
  Transmission Date: 20120928
  Serious: Yes (Hospitalization)
  Sender: FDA-Public Use
  Company Number: JP-VERTEX PHARMACEUTICALS INC.-AE-2012-005677

PATIENT
  Age: 72 Year
  Sex: Male

DRUGS (8)
  1. REBETOL [Concomitant]
     Indication: HEPATITIS C
     Route: 048
     Dates: start: 20120202, end: 20120215
  2. REBETOL [Concomitant]
     Route: 048
     Dates: start: 20120426
  3. REBETOL [Concomitant]
     Route: 048
     Dates: start: 20120216, end: 20120222
  4. ALLOPURINOL [Concomitant]
     Route: 048
     Dates: start: 20120308, end: 20120405
  5. REBETOL [Concomitant]
     Route: 048
     Dates: start: 20120223, end: 20120425
  6. PEG-INTRON [Concomitant]
     Indication: HEPATITIS C
     Route: 058
     Dates: start: 20120202
  7. TELAVIC (TELAPREVIR) [Suspect]
     Indication: HEPATITIS C
     Route: 048
     Dates: start: 20120202, end: 20120426
  8. ALLOPURINOL [Concomitant]
     Indication: HYPERURICAEMIA
     Route: 048
     Dates: start: 20120216, end: 20120307

REACTIONS (1)
  - RASH PAPULAR [None]
